FAERS Safety Report 24361811 (Version 1)
Quarter: 2024Q3

REPORT INFORMATION
  Report Type: Spontaneous
  Country: US (occurrence: US)
  Receive Date: 20240925
  Receipt Date: 20240925
  Transmission Date: 20241016
  Serious: No
  Sender: ABBVIE
  Company Number: US-ABBVIE-5927555

PATIENT
  Sex: Female

DRUGS (1)
  1. SYNTHROID [Suspect]
     Active Substance: LEVOTHYROXINE SODIUM
     Indication: Hypothyroidism
     Route: 048

REACTIONS (5)
  - Feeling abnormal [Unknown]
  - Headache [Unknown]
  - Asthenia [Unknown]
  - Food allergy [Unknown]
  - Dairy intolerance [Unknown]

NARRATIVE: CASE EVENT DATE: 20240101
